FAERS Safety Report 18578966 (Version 1)
Quarter: 2020Q4

REPORT INFORMATION
  Report Type: Spontaneous
  Country: US (occurrence: US)
  Receive Date: 20201203
  Receipt Date: 20201203
  Transmission Date: 20210114
  Serious: Yes (Other)
  Sender: FDA-Public Use
  Company Number: None

PATIENT
  Age: 29 Year
  Sex: Male
  Weight: 74.25 kg

DRUGS (2)
  1. NAPROXEN. [Concomitant]
     Active Substance: NAPROXEN
  2. ALKA-SELTZER PLUS SEVERE COLD POWERFAST FIZZ [Suspect]
     Active Substance: ASPIRIN\DEXTROMETHORPHAN HYDROBROMIDE\DOXYLAMINE SUCCINATE\PHENYLEPHRINE BITARTRATE
     Indication: NASOPHARYNGITIS
     Dosage: ?          QUANTITY:2 TABLET(S);?
     Route: 048
     Dates: start: 20201201, end: 20201201

REACTIONS (7)
  - Nausea [None]
  - Somnolence [None]
  - Pain [None]
  - Product quality issue [None]
  - Headache [None]
  - Allergic reaction to excipient [None]
  - Dizziness [None]

NARRATIVE: CASE EVENT DATE: 20201201
